FAERS Safety Report 8137522-6 (Version None)
Quarter: 2012Q1

REPORT INFORMATION
  Report Type: 
  Country: None (occurrence: None)
  Receive Date: 20120103
  Receipt Date: 20110908
  Transmission Date: 20120608
  Serious: No
  Sender: FDA-Public Use
  Company Number: AE-2011-001392

PATIENT
  Age: 54 Year
  Sex: Female
  Weight: 59.4212 kg

DRUGS (6)
  1. INCIVEK [Suspect]
     Dosage: 2250 MG (750 MG, 1 IN 8 HR), ORAL
     Route: 048
     Dates: start: 20110902
  2. ZOLOFT [Concomitant]
  3. RIBAVIRIN [Concomitant]
  4. PEGASYS [Concomitant]
  5. XANAX [Concomitant]
  6. OXYCODONE HCL [Concomitant]

REACTIONS (2)
  - RASH PRURITIC [None]
  - DRUG DOSE OMISSION [None]
